FAERS Safety Report 12309921 (Version 8)
Quarter: 2018Q3

REPORT INFORMATION
  Report Type: Spontaneous
  Country: CA (occurrence: CA)
  Receive Date: 20160427
  Receipt Date: 20180705
  Transmission Date: 20181010
  Serious: Yes (Hospitalization, Other)
  Sender: FDA-Public Use
  Company Number: CA-GLAXOSMITHKLINE-CA2015GSK081756

PATIENT
  Sex: Female
  Weight: 59.3 kg

DRUGS (10)
  1. BENLYSTA [Suspect]
     Active Substance: BELIMUMAB
     Dosage: 600 MG, UNK, EVERY 4 WEEKS
     Route: 042
  2. RANITIDINE. [Concomitant]
     Active Substance: RANITIDINE
     Indication: PRODUCT USED FOR UNKNOWN INDICATION
     Dosage: 75 MG, 1D
  3. BENLYSTA [Suspect]
     Active Substance: BELIMUMAB
     Dosage: 600 UNK, UNK
  4. METHOTREXATE. [Concomitant]
     Active Substance: METHOTREXATE
     Indication: PRODUCT USED FOR UNKNOWN INDICATION
     Dosage: UNK
  5. BENLYSTA [Suspect]
     Active Substance: BELIMUMAB
     Indication: SYSTEMIC LUPUS ERYTHEMATOSUS
     Dosage: 700 MG, UNK
     Route: 042
  6. AZATHIOPRINE. [Concomitant]
     Active Substance: AZATHIOPRINE
     Indication: PRODUCT USED FOR UNKNOWN INDICATION
     Dosage: UNK
  7. BENLYSTA [Suspect]
     Active Substance: BELIMUMAB
     Dosage: 600 UNK, UNK
  8. CYMBALTA [Concomitant]
     Active Substance: DULOXETINE HYDROCHLORIDE
     Indication: DEPRESSION
     Dosage: 30 MG, 1D
     Route: 048
  9. PREDNISONE. [Concomitant]
     Active Substance: PREDNISONE
     Indication: PRODUCT USED FOR UNKNOWN INDICATION
     Dosage: UNK
     Dates: end: 20170907
  10. CHLOROQUINE. [Concomitant]
     Active Substance: CHLOROQUINE
     Indication: PRODUCT USED FOR UNKNOWN INDICATION
     Dosage: 250 MG, 1D
     Dates: end: 20170907

REACTIONS (14)
  - Condition aggravated [Unknown]
  - Depression [Unknown]
  - Adverse event [Unknown]
  - Erythema [Unknown]
  - Nausea [Unknown]
  - Abscess [Unknown]
  - Oral candidiasis [Unknown]
  - Urinary tract infection [Unknown]
  - Cellulitis [Not Recovered/Not Resolved]
  - Systemic lupus erythematosus disease activity index abnormal [Unknown]
  - Swelling [Unknown]
  - Renal disorder [Unknown]
  - Leukopenia [Unknown]
  - Gastrointestinal infection [Unknown]
